FAERS Safety Report 5622066-3 (Version None)
Quarter: 2008Q1

REPORT INFORMATION
  Report Type: 
  Country: None (occurrence: None)
  Receive Date: 20080206
  Receipt Date: 20080122
  Transmission Date: 20080703
  Serious: Yes (Other)
  Sender: FDA-Public Use
  Company Number: 2008AP000246

PATIENT
  Age: 33 Year
  Sex: Female

DRUGS (9)
  1. PAROXETINE HCL [Suspect]
     Dosage: 10 MG; QD; 20 MG; QD; 20 MG; QD; 10 MG; QD; 20 MG;QD; 17.5 MG; QD; 14 MG; QD; 10 MG; QD; 10 MG; QD
     Dates: start: 19960101
  2. PAROXETINE HCL [Suspect]
     Dosage: 10 MG; QD; 20 MG; QD; 20 MG; QD; 10 MG; QD; 20 MG;QD; 17.5 MG; QD; 14 MG; QD; 10 MG; QD; 10 MG; QD
     Dates: start: 19960620
  3. PAROXETINE HCL [Suspect]
     Dosage: 10 MG; QD; 20 MG; QD; 20 MG; QD; 10 MG; QD; 20 MG;QD; 17.5 MG; QD; 14 MG; QD; 10 MG; QD; 10 MG; QD
     Dates: start: 19980101
  4. PAROXETINE HCL [Suspect]
     Dosage: 10 MG; QD; 20 MG; QD; 20 MG; QD; 10 MG; QD; 20 MG;QD; 17.5 MG; QD; 14 MG; QD; 10 MG; QD; 10 MG; QD
     Dates: start: 20030601
  5. PAROXETINE HCL [Suspect]
     Dosage: 10 MG; QD; 20 MG; QD; 20 MG; QD; 10 MG; QD; 20 MG;QD; 17.5 MG; QD; 14 MG; QD; 10 MG; QD; 10 MG; QD
     Dates: start: 20040101
  6. PAROXETINE HCL [Suspect]
     Dosage: 10 MG; QD; 20 MG; QD; 20 MG; QD; 10 MG; QD; 20 MG;QD; 17.5 MG; QD; 14 MG; QD; 10 MG; QD; 10 MG; QD
     Dates: start: 20040801
  7. PAROXETINE HCL [Suspect]
     Dosage: 10 MG; QD; 20 MG; QD; 20 MG; QD; 10 MG; QD; 20 MG;QD; 17.5 MG; QD; 14 MG; QD; 10 MG; QD; 10 MG; QD
     Dates: start: 20040801
  8. PAROXETINE HCL [Suspect]
     Dosage: 10 MG; QD; 20 MG; QD; 20 MG; QD; 10 MG; QD; 20 MG;QD; 17.5 MG; QD; 14 MG; QD; 10 MG; QD; 10 MG; QD
     Dates: start: 20050301
  9. TRAZODONE HCL [Concomitant]

REACTIONS (21)
  - ANXIETY [None]
  - CONFUSIONAL STATE [None]
  - CRYING [None]
  - DEPRESSION [None]
  - DIARRHOEA [None]
  - DISEASE RECURRENCE [None]
  - DIZZINESS [None]
  - DRUG WITHDRAWAL SYNDROME [None]
  - GASTRIC ULCER [None]
  - HYPERHIDROSIS [None]
  - HYPERVIGILANCE [None]
  - INJURY [None]
  - INSOMNIA [None]
  - MOOD SWINGS [None]
  - PERSONALITY CHANGE [None]
  - PSYCHOMOTOR HYPERACTIVITY [None]
  - RESTLESSNESS [None]
  - STOMACH DISCOMFORT [None]
  - SUICIDAL IDEATION [None]
  - TREMOR [None]
  - VOMITING [None]
